FAERS Safety Report 7238506-2 (Version None)
Quarter: 2011Q1

REPORT INFORMATION
  Report Type: 
  Country: None (occurrence: None)
  Receive Date: 20110119
  Receipt Date: 20110119
  Transmission Date: 20110831
  Serious: Yes (Hospitalization)
  Sender: FDA-Public Use
  Company Number: None

PATIENT
  Sex: Male
  Weight: 66.5 kg

DRUGS (4)
  1. EVEROLIMUS 5 MG TABLETS NOVARTIS [Suspect]
     Indication: NON-HODGKIN'S LYMPHOMA RECURRENT
     Dosage: 5 MG DAILY
     Dates: start: 20101223
  2. BORTEZOMIB [Suspect]
     Dosage: 1.0MG/M? IV
     Route: 042
     Dates: start: 20110111
  3. LEXAPRO [Concomitant]
  4. NEXIUM [Concomitant]

REACTIONS (5)
  - PLATELET COUNT DECREASED [None]
  - PANCREATITIS [None]
  - NEOPLASM MALIGNANT [None]
  - PANCREATIC CARCINOMA [None]
  - LYMPHOMA [None]
